FAERS Safety Report 20949079 (Version 1)
Quarter: 2022Q2

REPORT INFORMATION
  Report Type: Spontaneous
  Country: US (occurrence: US)
  Receive Date: 20220613
  Receipt Date: 20220613
  Transmission Date: 20220720
  Serious: No
  Sender: FDA-Public Use
  Company Number: US-GLAXOSMITHKLINE-USCH2022020256

PATIENT

DRUGS (1)
  1. ALLI [Suspect]
     Active Substance: ORLISTAT
     Indication: Weight decreased
     Dosage: UNK

REACTIONS (4)
  - Heart rate increased [Unknown]
  - Abdominal discomfort [Unknown]
  - Dyspnoea [Unknown]
  - Abdominal pain upper [Unknown]
